FAERS Safety Report 20785693 (Version 1)
Quarter: 2022Q2

REPORT INFORMATION
  Report Type: Spontaneous
  Country: US (occurrence: None)
  Receive Date: 20220504
  Receipt Date: 20220504
  Transmission Date: 20220721
  Serious: No
  Sender: FDA-Public Use
  Company Number: US-ROCHE-2836783

PATIENT
  Age: 50 Year
  Sex: Female
  Weight: 80.812 kg

DRUGS (1)
  1. OCREVUS [Suspect]
     Active Substance: OCRELIZUMAB
     Indication: Multiple sclerosis
     Dosage: FIRST 300 MG INFUSIONS SEPARATED BY TWO WEEKS ;ONGOING: YES?THE SECOND DOSE WAS ON 11/MAR/2021
     Route: 042
     Dates: start: 20210224

REACTIONS (2)
  - Hypoaesthesia [Unknown]
  - Feeling hot [Unknown]

NARRATIVE: CASE EVENT DATE: 20210524
